FAERS Safety Report 7751695-6 (Version None)
Quarter: 2011Q3

REPORT INFORMATION
  Report Type: 
  Country: None (occurrence: None)
  Receive Date: 20110915
  Receipt Date: 20110906
  Transmission Date: 20111222
  Serious: Yes (Other)
  Sender: FDA-Public Use
  Company Number: JP-BRISTOL-MYERS SQUIBB COMPANY-16055386

PATIENT
  Age: 72 Year
  Sex: Male

DRUGS (2)
  1. PACLITAXEL [Suspect]
     Indication: ADENOCARCINOMA
  2. CARBOPLATIN [Suspect]
     Indication: ADENOCARCINOMA

REACTIONS (1)
  - INTERSTITIAL LUNG DISEASE [None]
